FAERS Safety Report 8104596-8 (Version None)
Quarter: 2012Q1

REPORT INFORMATION
  Report Type: 
  Country: None (occurrence: None)
  Receive Date: 20120201
  Receipt Date: 20120117
  Transmission Date: 20120608
  Serious: Yes (Hospitalization, Other)
  Sender: FDA-Public Use
  Company Number: US-JUTA GMBH-2012-01410

PATIENT
  Age: 48 Year
  Sex: Male

DRUGS (3)
  1. CIPROFLOXACIN HCL [Suspect]
     Indication: GASTROINTESTINAL DISORDER
     Route: 065
  2. SUCRALFATE [Suspect]
  3. METRONIDAZOLE [Suspect]
     Indication: GASTROINTESTINAL DISORDER
     Route: 065

REACTIONS (5)
  - LEUKOCYTOCLASTIC VASCULITIS [None]
  - SCROTAL SWELLING [None]
  - JOINT SWELLING [None]
  - BLISTER [None]
  - CELLULITIS [None]
